FAERS Safety Report 8055770-0 (Version None)
Quarter: 2011Q4

REPORT INFORMATION
  Report Type: 
  Country: None (occurrence: None)
  Receive Date: 20111215
  Receipt Date: 20110420
  Transmission Date: 20120403
  Serious: Yes (Other)
  Sender: FDA-Public Use
  Company Number: 1000019342

PATIENT
  Age: 83 Year
  Sex: Male

DRUGS (13)
  1. LIPITOR [Concomitant]
  2. PRAVASTATNI (PRAVASTATIN) (TABLETS) (PRAVASTATIN) [Concomitant]
  3. DUETACT (PROGLITAZONE HYDROCHLORIDE, GLIMEPIRIDE) (PROGLITAZONE HYDROC [Concomitant]
  4. TOPROL (METOPROLOL SUCCINATE) (METOPROLOL SUCCINATE) [Concomitant]
  5. FISH OIL (FISH OIL) (FISH OIL) [Concomitant]
  6. VITAMINS (NOS) (VITAMINS (NOS)) (VITAMINS (NOS)) [Concomitant]
  7. FLUOXETINE [Concomitant]
  8. THYROXINE (LEVOTHYROXINE SODIUM) (LEVOTHYROXINE SODIUM) [Concomitant]
  9. ASPIRIN [Concomitant]
  10. NAMENDA [Suspect]
     Indication: DEMENTIA
     Dosage: 10 MG BID (10 MG,2 IN 1 D),ORAL
     Route: 048
     Dates: start: 20100101
  11. VITAMIN E (VITAMIN E) (VITAMIN E) [Concomitant]
  12. ARICEPT [Suspect]
     Indication: DEMENTIA
     Dosage: (2 IN 1 D),ORAL
     Route: 048
     Dates: start: 20090101, end: 20110401
  13. LANTUS (INSULIN GLARGINE) (INSULIN GLARGINE) [Concomitant]

REACTIONS (9)
  - ABNORMAL BEHAVIOUR [None]
  - URINARY INCONTINENCE [None]
  - FAECAL INCONTINENCE [None]
  - COUGH [None]
  - BLOOD GLUCOSE FLUCTUATION [None]
  - CRYING [None]
  - AGGRESSION [None]
  - MEMORY IMPAIRMENT [None]
  - NASOPHARYNGITIS [None]
